FAERS Safety Report 24914723 (Version 3)
Quarter: 2025Q1

REPORT INFORMATION
  Report Type: Report from Study
  Country: US (occurrence: US)
  Receive Date: 20250203
  Receipt Date: 20250326
  Transmission Date: 20250408
  Serious: No
  Sender: ACADIA PHARMACEUTICALS
  Company Number: US-ACADIA PHARMACEUTICALS INC.-ACA-2025-TRF-000759

PATIENT
  Sex: Male

DRUGS (6)
  1. DAYBUE [Suspect]
     Active Substance: TROFINETIDE
     Indication: Rett syndrome
     Dosage: 15 MILLILITER, BID
     Route: 048
  2. DAYBUE [Suspect]
     Active Substance: TROFINETIDE
     Dosage: 25 MILLILITER, BID
     Route: 048
  3. DAYBUE [Suspect]
     Active Substance: TROFINETIDE
     Dosage: 20 MILLILITER, BID
     Route: 048
  4. DAYBUE [Suspect]
     Active Substance: TROFINETIDE
     Dosage: 30 MILLILITER, BID
     Route: 048
  5. TRILEPTAL [Concomitant]
     Active Substance: OXCARBAZEPINE
     Indication: Seizure
  6. TRILEPTAL [Concomitant]
     Active Substance: OXCARBAZEPINE

REACTIONS (10)
  - Cough [Recovered/Resolved]
  - Influenza [Recovered/Resolved]
  - Polydipsia [Unknown]
  - Influenza [Not Recovered/Not Resolved]
  - Diarrhoea [Recovered/Resolved]
  - Pyrexia [Recovered/Resolved]
  - Somnolence [Unknown]
  - Intentional dose omission [Unknown]
  - Underdose [Unknown]
  - Product use complaint [Not Recovered/Not Resolved]
